FAERS Safety Report 5885650-8 (Version None)
Quarter: 2008Q3

REPORT INFORMATION
  Report Type: 
  Country: None (occurrence: None)
  Receive Date: 20080912
  Receipt Date: 20080905
  Transmission Date: 20090109
  Serious: Yes (Death)
  Sender: FDA-Public Use
  Company Number: MSTR-NO-0809S-0063

PATIENT
  Age: 73 Year
  Sex: Female

DRUGS (1)
  1. METASTRON (STRONTTUM SR89 CHLORIDE) [Suspect]
     Indication: METASTASES TO BONE
     Dosage: SINGLE DOSE, I.V.
     Route: 042
     Dates: start: 20080527

REACTIONS (1)
  - CONDITION AGGRAVATED [None]
